FAERS Safety Report 23628460 (Version 2)
Quarter: 2025Q3

REPORT INFORMATION
  Report Type: Spontaneous
  Country: EU (occurrence: EU)
  Receive Date: 20240313
  Receipt Date: 20250912
  Transmission Date: 20251020
  Serious: Yes (Other)
  Sender: MYLAN
  Company Number: EU-002147023-NVSC2024DE042614

PATIENT
  Sex: Male

DRUGS (52)
  1. METOPROLOL [Suspect]
     Active Substance: METOPROLOL
     Indication: Product used for unknown indication
  2. METOPROLOL [Suspect]
     Active Substance: METOPROLOL
     Route: 065
  3. METOPROLOL [Suspect]
     Active Substance: METOPROLOL
     Route: 065
  4. METOPROLOL [Suspect]
     Active Substance: METOPROLOL
  5. TORSEMIDE [Suspect]
     Active Substance: TORSEMIDE
     Indication: Product used for unknown indication
  6. TORSEMIDE [Suspect]
     Active Substance: TORSEMIDE
     Route: 065
  7. TORSEMIDE [Suspect]
     Active Substance: TORSEMIDE
     Route: 065
  8. TORSEMIDE [Suspect]
     Active Substance: TORSEMIDE
  9. EPLERENONE [Suspect]
     Active Substance: EPLERENONE
     Indication: Product used for unknown indication
  10. EPLERENONE [Suspect]
     Active Substance: EPLERENONE
     Route: 065
  11. EPLERENONE [Suspect]
     Active Substance: EPLERENONE
     Route: 065
  12. EPLERENONE [Suspect]
     Active Substance: EPLERENONE
  13. SIMVASTATIN [Suspect]
     Active Substance: SIMVASTATIN
     Indication: Product used for unknown indication
  14. SIMVASTATIN [Suspect]
     Active Substance: SIMVASTATIN
     Route: 065
  15. SIMVASTATIN [Suspect]
     Active Substance: SIMVASTATIN
     Route: 065
  16. SIMVASTATIN [Suspect]
     Active Substance: SIMVASTATIN
  17. METFORMIN [Suspect]
     Active Substance: METFORMIN HYDROCHLORIDE
     Indication: Product used for unknown indication
  18. METFORMIN [Suspect]
     Active Substance: METFORMIN HYDROCHLORIDE
     Route: 065
  19. METFORMIN [Suspect]
     Active Substance: METFORMIN HYDROCHLORIDE
     Route: 065
  20. METFORMIN [Suspect]
     Active Substance: METFORMIN HYDROCHLORIDE
  21. XIPAMIDE [Suspect]
     Active Substance: XIPAMIDE
     Indication: Product used for unknown indication
  22. XIPAMIDE [Suspect]
     Active Substance: XIPAMIDE
     Route: 065
  23. XIPAMIDE [Suspect]
     Active Substance: XIPAMIDE
     Route: 065
  24. XIPAMIDE [Suspect]
     Active Substance: XIPAMIDE
  25. ENTRESTO [Suspect]
     Active Substance: SACUBITRIL\VALSARTAN
     Indication: Product used for unknown indication
  26. ENTRESTO [Suspect]
     Active Substance: SACUBITRIL\VALSARTAN
     Route: 065
  27. ENTRESTO [Suspect]
     Active Substance: SACUBITRIL\VALSARTAN
     Route: 065
  28. ENTRESTO [Suspect]
     Active Substance: SACUBITRIL\VALSARTAN
  29. ZINC OROTATE [Suspect]
     Active Substance: ZINC OROTATE
     Indication: Product used for unknown indication
  30. ZINC OROTATE [Suspect]
     Active Substance: ZINC OROTATE
     Route: 065
  31. ZINC OROTATE [Suspect]
     Active Substance: ZINC OROTATE
     Route: 065
  32. ZINC OROTATE [Suspect]
     Active Substance: ZINC OROTATE
  33. DIETARY SUPPLEMENT\HERBALS [Suspect]
     Active Substance: DIETARY SUPPLEMENT\HERBALS
     Indication: Product used for unknown indication
  34. DIETARY SUPPLEMENT\HERBALS [Suspect]
     Active Substance: DIETARY SUPPLEMENT\HERBALS
     Route: 065
  35. DIETARY SUPPLEMENT\HERBALS [Suspect]
     Active Substance: DIETARY SUPPLEMENT\HERBALS
     Route: 065
  36. DIETARY SUPPLEMENT\HERBALS [Suspect]
     Active Substance: DIETARY SUPPLEMENT\HERBALS
  37. JARDIANCE [Suspect]
     Active Substance: EMPAGLIFLOZIN
     Indication: Product used for unknown indication
  38. JARDIANCE [Suspect]
     Active Substance: EMPAGLIFLOZIN
     Route: 065
  39. JARDIANCE [Suspect]
     Active Substance: EMPAGLIFLOZIN
     Route: 065
  40. JARDIANCE [Suspect]
     Active Substance: EMPAGLIFLOZIN
  41. SITAGLIPTIN PHOSPHATE [Suspect]
     Active Substance: SITAGLIPTIN PHOSPHATE
     Indication: Product used for unknown indication
  42. SITAGLIPTIN PHOSPHATE [Suspect]
     Active Substance: SITAGLIPTIN PHOSPHATE
     Route: 065
  43. SITAGLIPTIN PHOSPHATE [Suspect]
     Active Substance: SITAGLIPTIN PHOSPHATE
     Route: 065
  44. SITAGLIPTIN PHOSPHATE [Suspect]
     Active Substance: SITAGLIPTIN PHOSPHATE
  45. DIGITOXIN [Suspect]
     Active Substance: DIGITOXIN
     Indication: Product used for unknown indication
  46. DIGITOXIN [Suspect]
     Active Substance: DIGITOXIN
     Route: 065
  47. DIGITOXIN [Suspect]
     Active Substance: DIGITOXIN
     Route: 065
  48. DIGITOXIN [Suspect]
     Active Substance: DIGITOXIN
  49. POTASSIUM CHLORIDE [Suspect]
     Active Substance: POTASSIUM CHLORIDE
     Indication: Product used for unknown indication
  50. POTASSIUM CHLORIDE [Suspect]
     Active Substance: POTASSIUM CHLORIDE
     Route: 065
  51. POTASSIUM CHLORIDE [Suspect]
     Active Substance: POTASSIUM CHLORIDE
     Route: 065
  52. POTASSIUM CHLORIDE [Suspect]
     Active Substance: POTASSIUM CHLORIDE

REACTIONS (2)
  - Diabetes mellitus [Unknown]
  - Dry skin [Unknown]
